FAERS Safety Report 8917091 (Version 1)
Quarter: 2012Q4

REPORT INFORMATION
  Report Type: 
  Country: AU (occurrence: AU)
  Receive Date: 20121120
  Receipt Date: 20121120
  Transmission Date: 20130627
  Serious: Yes (Life-Threatening, Other)
  Sender: FDA-Public Use
  Company Number: AU-ROCHE-1155832

PATIENT
  Age: 60 Year
  Sex: Female

DRUGS (3)
  1. HERCEPTIN [Suspect]
     Indication: BREAST CANCER
     Route: 065
  2. TYKERB [Concomitant]
     Route: 065
  3. XELODA [Concomitant]
     Route: 065

REACTIONS (4)
  - Central nervous system lesion [Unknown]
  - Pericardial effusion [Unknown]
  - Cystitis haemorrhagic [Unknown]
  - Pyrexia [Unknown]
